FAERS Safety Report 4334697-1 (Version None)
Quarter: 2004Q2

REPORT INFORMATION
  Report Type: 
  Country: None (occurrence: None)
  Receive Date: 20040407
  Receipt Date: 20040407
  Transmission Date: 20050107
  Serious: Yes (Hospitalization)
  Sender: FDA-Public Use
  Company Number: None

PATIENT
  Sex: Male
  Weight: 82.7361 kg

DRUGS (8)
  1. GEMCITABINE 100 MG/ML ELI LILY [Suspect]
     Indication: PANCREATIC CARCINOMA
     Dosage: 1000 MG/M2 DAY 1 + 15 IV
     Route: 042
     Dates: start: 20040401, end: 20040401
  2. CISPLATIN [Suspect]
     Indication: PANCREATIC CARCINOMA
     Dosage: 20  MG/M2 DAY 1 + 15 IV
     Route: 042
     Dates: start: 20040401, end: 20040401
  3. IRBESARTAN [Concomitant]
  4. ATENOLOL [Concomitant]
  5. FELDOPINE [Concomitant]
  6. AMARYL [Concomitant]
  7. GLUCOPHAGE [Concomitant]
  8. VICODIN [Concomitant]

REACTIONS (3)
  - ABDOMINAL PAIN [None]
  - HAEMATURIA [None]
  - HYPONATRAEMIA [None]
